FAERS Safety Report 21321200 (Version 3)
Quarter: 2022Q4

REPORT INFORMATION
  Report Type: Report from Study
  Country: JP (occurrence: JP)
  Receive Date: 20220912
  Receipt Date: 20221025
  Transmission Date: 20230113
  Serious: Yes (Other)
  Sender: FDA-Public Use
  Company Number: JP-BIOVITRUM-2022JP02996

PATIENT
  Sex: Male
  Weight: 5 kg

DRUGS (12)
  1. NITISINONE [Suspect]
     Active Substance: NITISINONE
     Indication: Product used for unknown indication
  2. NITISINONE [Suspect]
     Active Substance: NITISINONE
     Dates: start: 20220113, end: 20220210
  3. TOCOPHEROL ACETATE [TOCOPHEROL] [Concomitant]
     Dates: end: 20220126
  4. MENATETRENONE [Concomitant]
     Active Substance: MENATETRENONE
     Dates: end: 20220126
  5. ZINC [Concomitant]
     Active Substance: ZINC
     Dosage: 25 MILLIGRAM TABLET
  6. LEVOCARNITINE [Concomitant]
     Active Substance: LEVOCARNITINE
     Dates: end: 20220126
  7. BIOTIN [Concomitant]
     Active Substance: BIOTIN
     Dates: end: 20210126
  8. GLYCYRON [GLYCYRRHIZIC ACID, AMMONIUM SALT] [Concomitant]
  9. URSO [Concomitant]
     Active Substance: URSODIOL
  10. ALFAROL [Concomitant]
     Active Substance: ALFACALCIDOL
  11. SODIUM PHOSPHATE, DIBASIC\SODIUM PHOSPHATE, MONOBASIC [Concomitant]
     Active Substance: SODIUM PHOSPHATE, DIBASIC\SODIUM PHOSPHATE, MONOBASIC
  12. VITAMINS [Concomitant]
     Active Substance: VITAMINS

REACTIONS (4)
  - Alanine aminotransferase increased [Unknown]
  - Amino acid level increased [Unknown]
  - Wrong technique in product usage process [Unknown]
  - Off label use [Unknown]
